FAERS Safety Report 6757231-5 (Version None)
Quarter: 2010Q2

REPORT INFORMATION
  Report Type: 
  Country: None (occurrence: None)
  Receive Date: 20100607
  Receipt Date: 20100528
  Transmission Date: 20101027
  Serious: Yes (Hospitalization)
  Sender: FDA-Public Use
  Company Number: US-BIOGENIDEC-2010BI008189

PATIENT
  Age: 33 Year
  Sex: Female

DRUGS (11)
  1. TYSABRI [Suspect]
     Indication: MULTIPLE SCLEROSIS
     Route: 042
     Dates: start: 20091229
  2. HYDROMORPHONE HCL [Concomitant]
     Indication: PAIN
     Route: 048
     Dates: start: 20091204
  3. HYDROMORPHONE HCL [Concomitant]
     Route: 048
     Dates: start: 20091130, end: 20091204
  4. DIPHENHYDRAMINE HYDROCHLORIDE [Concomitant]
     Indication: PRURITUS
     Route: 048
     Dates: start: 20091204
  5. ALPRAZOLAM [Concomitant]
     Indication: ANXIETY
     Route: 048
     Dates: start: 20091130, end: 20091215
  6. ACETAMINOPHEN [Concomitant]
     Route: 048
  7. GABAPENTIN [Concomitant]
     Dates: start: 20091007, end: 20091215
  8. OMEPRAZOLE [Concomitant]
     Route: 048
     Dates: start: 20091007, end: 20100330
  9. TRAMADOL HCL [Concomitant]
     Indication: PAIN
     Dates: start: 20091023
  10. PERCOCET [Concomitant]
     Dates: start: 20091023
  11. AMBIEN [Concomitant]
     Indication: SLEEP DISORDER
     Route: 048
     Dates: start: 20091007

REACTIONS (1)
  - NO ADVERSE EVENT [None]
